FAERS Safety Report 9910849 (Version 2)
Quarter: 2014Q1

REPORT INFORMATION
  Report Type: Report from Study
  Country: FR (occurrence: FR)
  Receive Date: 20140219
  Receipt Date: 20140219
  Transmission Date: 20141002
  Serious: Yes (Disabling)
  Sender: FDA-Public Use
  Company Number: FR-ALLERGAN-1307669US

PATIENT
  Age: 52 Year
  Sex: Female
  Weight: 75 kg

DRUGS (4)
  1. DEX 0.7MG INS (9632X) [Suspect]
     Indication: MACULAR OEDEMA
     Dosage: 0.7 MG, SINGLE
     Route: 031
     Dates: start: 20130308, end: 20130308
  2. DEX 0.7MG INS (9632X) [Suspect]
     Indication: RETINAL VEIN OCCLUSION
     Dosage: 0.7 MG, SINGLE
     Route: 031
     Dates: start: 20121123, end: 20121123
  3. DEX 0.7MG INS (9632X) [Suspect]
     Dosage: 0.7 MG, SINGLE
     Route: 031
     Dates: start: 20120715, end: 20120715
  4. VEINAMITOL [Concomitant]
     Indication: RETINAL VEIN OCCLUSION
     Dosage: 3500, 1 DF, QD
     Route: 048
     Dates: start: 201206

REACTIONS (1)
  - Vitreous haemorrhage [Recovered/Resolved]
